FAERS Safety Report 10051036 (Version 2)
Quarter: 2014Q2

REPORT INFORMATION
  Report Type: Report from Study
  Country: US (occurrence: US)
  Receive Date: 20140401
  Receipt Date: 20140404
  Transmission Date: 20141212
  Serious: Yes (Life-Threatening, Hospitalization)
  Sender: FDA-Public Use
  Company Number: US-009507513-1403USA013799

PATIENT
  Age: 53 Year
  Sex: Male
  Weight: 70.8 kg

DRUGS (7)
  1. VORINOSTAT [Suspect]
     Indication: NON-HODGKIN^S LYMPHOMA
     Dosage: 300 MG, PO ON DAYS 1-5
     Route: 048
     Dates: start: 20140314
  2. ETOPOSIDE [Suspect]
     Indication: NON-HODGKIN^S LYMPHOMA
     Dosage: 50 MG/M2/DAY, CONTINUOS IV INFUSION OVER 96 HOUR ON DAYS 1-4
     Route: 042
     Dates: start: 20140314
  3. RITUXIMAB [Suspect]
     Indication: NON-HODGKIN^S LYMPHOMA
     Dosage: 375 MG/M2 ON DAY 1
     Route: 042
     Dates: start: 20140314
  4. DOXORUBICIN [Suspect]
     Indication: NON-HODGKIN^S LYMPHOMA
     Dosage: 10 MG/M2,/DAY CONTINUOUS IV INFUSION OVER 96 HOURS ON DAYS 1-4
     Route: 042
     Dates: start: 20140314
  5. VINCRISTINE [Suspect]
     Indication: NON-HODGKIN^S LYMPHOMA
     Dosage: 0.4 MG/M2/DAY CONTINUOUS IV INFUSION OVER 96 HOURS ON DAYS 1-4
     Route: 042
     Dates: start: 20140314
  6. PREDNISONE [Suspect]
     Indication: NON-HODGKIN^S LYMPHOMA
     Dosage: 60 MG/M2/DAY ON DAYS 1-5
     Route: 048
     Dates: start: 20140314
  7. CYCLOPHOSPHAMIDE [Suspect]
     Indication: NON-HODGKIN^S LYMPHOMA
     Dosage: 375 MG/M2-750 MG/M2 OVER 1 HOUR ON DAY 5
     Route: 042
     Dates: start: 20140314

REACTIONS (3)
  - Platelet count decreased [Recovering/Resolving]
  - White blood cell count decreased [Recovering/Resolving]
  - Febrile neutropenia [Recovering/Resolving]
